FAERS Safety Report 21627222 (Version 1)
Quarter: 2022Q4

REPORT INFORMATION
  Report Type: Report from Study
  Country: US (occurrence: US)
  Receive Date: 20221122
  Receipt Date: 20221122
  Transmission Date: 20230112
  Serious: No
  Sender: FDA-Public Use
  Company Number: US-ABBVIE-22K-163-4439813-00

PATIENT
  Sex: Female

DRUGS (2)
  1. IMBRUVICA [Suspect]
     Active Substance: IBRUTINIB
     Indication: Follicular lymphoma
     Route: 048
     Dates: start: 202002
  2. IMBRUVICA [Suspect]
     Active Substance: IBRUTINIB
     Indication: Follicular lymphoma
     Route: 048

REACTIONS (10)
  - Insomnia [Unknown]
  - Panic attack [Unknown]
  - Coeliac disease [Unknown]
  - Heart rate abnormal [Unknown]
  - Iron deficiency [Unknown]
  - Gastric disorder [Unknown]
  - Stress [Unknown]
  - Hearing aid user [Unknown]
  - Atrial fibrillation [Unknown]
  - Vomiting [Unknown]
